FAERS Safety Report 6510058-1 (Version None)
Quarter: 2009Q4

REPORT INFORMATION
  Report Type: 
  Country: None (occurrence: None)
  Receive Date: 20091222
  Receipt Date: 20090908
  Transmission Date: 20100525
  Serious: No
  Sender: FDA-Public Use
  Company Number: US-BAUSCH-2009BL004618

PATIENT
  Age: 59 Year
  Sex: Female

DRUGS (5)
  1. BESIVANCE [Suspect]
     Indication: CORNEAL ABRASION
     Route: 047
     Dates: start: 20090817, end: 20090821
  2. BESIVANCE [Suspect]
     Indication: OFF LABEL USE
     Route: 047
     Dates: start: 20090817, end: 20090821
  3. NORVASC [Concomitant]
     Indication: HYPERTENSION
  4. AVAPRO [Concomitant]
     Indication: HYPERTENSION
  5. LIQUITEARS LUBRICANT EYE DROPS [Concomitant]
     Indication: DRY EYE
     Route: 047

REACTIONS (1)
  - ULCERATIVE KERATITIS [None]
